FAERS Safety Report 8027581-3 (Version None)
Quarter: 2012Q1

REPORT INFORMATION
  Report Type: 
  Country: None (occurrence: None)
  Receive Date: 20120106
  Receipt Date: 20111226
  Transmission Date: 20120608
  Serious: Yes (Life-Threatening)
  Sender: FDA-Public Use
  Company Number: FR-SANOFI-AVENTIS-2011SA082509

PATIENT
  Age: 20 Year
  Sex: Female

DRUGS (4)
  1. DEXAMBUTOL [Suspect]
     Indication: PULMONARY TUBERCULOSIS
     Route: 048
     Dates: start: 20021105, end: 20021205
  2. PYRAZINAMIDE [Suspect]
     Indication: PULMONARY TUBERCULOSIS
     Route: 048
     Dates: start: 20021105
  3. RIMIFON [Suspect]
     Indication: PULMONARY TUBERCULOSIS
     Route: 048
     Dates: start: 20021105
  4. RIFADIN [Suspect]
     Indication: PULMONARY TUBERCULOSIS
     Route: 048
     Dates: start: 20021105, end: 20021205

REACTIONS (12)
  - VENOOCCLUSIVE LIVER DISEASE [None]
  - HEPATITIS FULMINANT [None]
  - LIVER TRANSPLANT [None]
  - CYTOLYTIC HEPATITIS [None]
  - AGITATION [None]
  - INTRA-ABDOMINAL HAEMATOMA [None]
  - HEPATIC FAILURE [None]
  - ANALGESIC DRUG LEVEL BELOW THERAPEUTIC [None]
  - LIVER TRANSPLANT REJECTION [None]
  - SEPTIC SHOCK [None]
  - ALLERGIC HEPATITIS [None]
  - HEPATIC NECROSIS [None]
